FAERS Safety Report 8023386-8 (Version None)
Quarter: 2012Q1

REPORT INFORMATION
  Report Type: 
  Country: None (occurrence: None)
  Receive Date: 20120104
  Receipt Date: 20111229
  Transmission Date: 20120608
  Serious: No
  Sender: FDA-Public Use
  Company Number: US-PFIZER INC-2011316591

PATIENT
  Sex: Female
  Weight: 56.236 kg

DRUGS (3)
  1. IBUPROFEN (ADVIL) [Suspect]
     Dosage: 200 MG, AS NEEDED
     Route: 048
     Dates: start: 20111201, end: 20111228
  2. TRIMETHOPRIM [Concomitant]
     Indication: URINARY TRACT INFECTION
     Dosage: 100 MG, 2X/DAY
  3. IBUPROFEN (ADVIL) [Suspect]
     Dosage: 200 MG, 2X/DAY
     Route: 048
     Dates: start: 20111228, end: 20111228

REACTIONS (2)
  - URINE ODOUR ABNORMAL [None]
  - ABDOMINAL PAIN UPPER [None]
